FAERS Safety Report 17983030 (Version 1)
Quarter: 2020Q3

REPORT INFORMATION
  Report Type: Spontaneous
  Country: US (occurrence: US)
  Receive Date: 20200706
  Receipt Date: 20200706
  Transmission Date: 20201103
  Serious: No
  Sender: FDA-Public Use
  Company Number: US-PFIZER INC-2020256850

PATIENT
  Age: 72 Year
  Sex: Female
  Weight: 48.3 kg

DRUGS (3)
  1. AMBRISENTAN [Suspect]
     Active Substance: AMBRISENTAN
     Indication: PULMONARY ARTERIAL HYPERTENSION
     Dosage: UNK
  2. REVATIO [Suspect]
     Active Substance: SILDENAFIL CITRATE
     Dosage: UNK
  3. TYVASO [Suspect]
     Active Substance: TREPROSTINIL
     Indication: PULMONARY ARTERIAL HYPERTENSION
     Dosage: 0.6 MG/ML ((CONCENTRATION OF 0.6 MG/ML, 18?54 UG (3?9 BREATHS))
     Route: 055
     Dates: start: 20180614

REACTIONS (3)
  - Oxygen saturation decreased [Unknown]
  - Nasal congestion [Unknown]
  - Nasal dryness [Unknown]
